FAERS Safety Report 12399755 (Version 1)
Quarter: 2016Q2

REPORT INFORMATION
  Report Type: Report from Study
  Country: GB (occurrence: GB)
  Receive Date: 20160524
  Receipt Date: 20160524
  Transmission Date: 20160815
  Serious: Yes (Hospitalization, Other)
  Sender: FDA-Public Use
  Company Number: GB-BAXALTA-2015VIG000928

PATIENT
  Age: 57 Year
  Sex: Male
  Weight: 120 kg

DRUGS (33)
  1. ONCASPAR [Suspect]
     Active Substance: PEGASPARGASE
     Indication: ACUTE LYMPHOCYTIC LEUKAEMIA
     Dosage: 2475 IU, DAY18
     Route: 042
     Dates: start: 20151029, end: 20151029
  2. RITUXIMAB [Suspect]
     Active Substance: RITUXIMAB
     Indication: ACUTE LYMPHOCYTIC LEUKAEMIA
     Dosage: 900 MG, DAY 10,13,17,24,37
     Route: 042
     Dates: start: 20151014, end: 20151117
  3. METFORMIN HYDROCHLORIDE. [Concomitant]
     Active Substance: METFORMIN HYDROCHLORIDE
     Indication: DIABETES MELLITUS
     Dosage: 1 GRAM, 1
     Route: 048
     Dates: start: 20150807
  4. POTASSIUM BICARBONATE. [Concomitant]
     Active Substance: POTASSIUM BICARBONATE
     Indication: SUPPLEMENTATION THERAPY
     Dosage: 2 TABLETS, 1X A DAY
     Route: 048
     Dates: start: 20151114, end: 20151115
  5. VINCRISTINE [Concomitant]
     Active Substance: VINCRISTINE
     Indication: ACUTE LYMPHOCYTIC LEUKAEMIA
     Dosage: 2 MG, AS INSTRUCTED
     Route: 042
     Dates: start: 20151012, end: 20151019
  6. DAUNORUBICIN [Concomitant]
     Active Substance: DAUNORUBICIN
     Indication: ACUTE LYMPHOCYTIC LEUKAEMIA
     Dosage: 75 MG, UNK
     Route: 042
     Dates: start: 20151012, end: 20151102
  7. METHOTREXATE [Concomitant]
     Active Substance: METHOTREXATE
     Indication: ACUTE LYMPHOCYTIC LEUKAEMIA
     Dosage: 12.5 MG, AS INSTRUCTED
     Route: 048
     Dates: start: 20151026, end: 20151026
  8. DEXAMETHASONE. [Concomitant]
     Active Substance: DEXAMETHASONE
     Dosage: 16 UNK, UNK
     Route: 048
     Dates: start: 20151012, end: 20151029
  9. RANITIDINE. [Concomitant]
     Active Substance: RANITIDINE
     Indication: ANTACID THERAPY
     Dosage: 150 MG, UNK
     Route: 048
     Dates: start: 20151112, end: 20151116
  10. PETHIDINE [Concomitant]
     Active Substance: MEPERIDINE
     Indication: PRODUCT USED FOR UNKNOWN INDICATION
     Dosage: 25 MG, AS NEEDED
     Route: 042
     Dates: start: 20151104, end: 20151104
  11. CARBOHYDRATES NOS,VITAMINS NOS,PROTEIN,MINERALS NOS,FATS NOS [Concomitant]
     Indication: NUTRITIONAL SUPPLEMENTATION
     Dosage: 2.50 ML, 5X PER DAY
     Route: 048
     Dates: start: 20151111
  12. SULFAMETHOXAZOLE,TRIMETHOPRIM [Concomitant]
     Active Substance: SULFAMETHOXAZOLE\TRIMETHOPRIM
     Indication: PROPHYLAXIS
     Dosage: 960 MG, UNK
     Route: 065
     Dates: start: 20151009, end: 20151118
  13. FOLIC ACID. [Concomitant]
     Active Substance: FOLIC ACID
     Indication: ANAEMIA
     Dosage: 5 MG, 1
     Route: 048
     Dates: start: 20151008
  14. ALLOPURINOL. [Concomitant]
     Active Substance: ALLOPURINOL
     Indication: HYPERAEMIA
     Dosage: 300 UNK, UNK
     Route: 048
     Dates: start: 20151008, end: 20151105
  15. ACICLOVIR [Concomitant]
     Active Substance: ACYCLOVIR
     Indication: NAUSEA
     Dosage: 200 MG, UNK
     Route: 048
     Dates: start: 20151007, end: 20151119
  16. LANSOPRAZOLE. [Concomitant]
     Active Substance: LANSOPRAZOLE
     Indication: GASTRIC DISORDER
     Dosage: 30 MG, 1
     Route: 048
     Dates: start: 20151117, end: 20151119
  17. POTASSIUM BICARBONATE. [Concomitant]
     Active Substance: POTASSIUM BICARBONATE
     Indication: BLOOD POTASSIUM DECREASED
  18. ONDANSETRON [Concomitant]
     Active Substance: ONDANSETRON
     Indication: PROPHYLAXIS
     Dosage: 8 MG, 1
     Route: 042
     Dates: start: 20151012, end: 20151102
  19. PARACETAMOL [Concomitant]
     Active Substance: ACETAMINOPHEN
     Indication: PROPHYLAXIS
     Dosage: 1000 MG, 1
     Route: 048
     Dates: start: 20151012, end: 20151102
  20. CYCLIZINE [Concomitant]
     Active Substance: CYCLIZINE
     Indication: NAUSEA
     Dosage: 50 MG, TID
     Route: 048
     Dates: start: 20151110
  21. PHYTOMENADIONE [Concomitant]
     Active Substance: PHYTONADIONE
     Indication: SUPPLEMENTATION THERAPY
     Dosage: 10 MG, 1
     Route: 042
     Dates: start: 20151117, end: 20151119
  22. CIPROFLOXACIN. [Concomitant]
     Active Substance: CIPROFLOXACIN
     Indication: NEUTROPENIA
     Dosage: 1200 MG, 1X A DAY
     Route: 042
     Dates: start: 20151106, end: 20151112
  23. PIPERACILLIN SODIUM, TAZOBACTAM SODIUM [Concomitant]
     Active Substance: PIPERACILLIN SODIUM\TAZOBACTAM SODIUM
     Indication: SEPSIS
     Dosage: 4.5 G, 1X A DAY
     Route: 042
     Dates: start: 20151105, end: 20151114
  24. GENTAMICIN. [Concomitant]
     Active Substance: GENTAMICIN
     Indication: SEPSIS
     Dosage: 500 MG, AS NEEDED
     Route: 042
     Dates: start: 20151104, end: 20151104
  25. DEXAMETHASONE. [Concomitant]
     Active Substance: DEXAMETHASONE
     Indication: ACUTE LYMPHOCYTIC LEUKAEMIA
     Dosage: 16 MG, AS INSTRUCTED
     Route: 048
     Dates: start: 20151007, end: 20151011
  26. FILGRASTIM [Concomitant]
     Active Substance: FILGRASTIM
     Indication: CSF GRANULOCYTE COUNT ABNORMAL
     Dosage: 450 MG, UNK
     Route: 058
     Dates: start: 20151110, end: 20151110
  27. PHOSPHORIC ACID SODIUM [Concomitant]
     Indication: BLOOD SODIUM DECREASED
     Dosage: 2 TABLETS, 3X A DAY
     Route: 048
     Dates: start: 20151115
  28. VINCRISTINE [Concomitant]
     Active Substance: VINCRISTINE
     Dosage: 1 MG, AS INSTRUCTED
     Route: 042
     Dates: start: 20151027, end: 20151102
  29. CHLORPHENAMINE [Concomitant]
     Active Substance: CHLORPHENIRAMINE MALEATE
     Indication: PROPHYLAXIS
     Dosage: 10 MG, UNK
     Route: 042
     Dates: start: 20151012, end: 20151102
  30. METOCLOPRAMIDE. [Concomitant]
     Active Substance: METOCLOPRAMIDE
     Indication: NAUSEA
     Dosage: 10 MG, 1
     Route: 048
     Dates: start: 20151007
  31. CLINDAMYCIN [Concomitant]
     Active Substance: CLINDAMYCIN\CLINDAMYCIN PHOSPHATE
     Indication: CELLULITIS
     Dosage: 450 MG, UNK
     Route: 048
     Dates: start: 20151110, end: 20151117
  32. PHYTOMENADIONE [Concomitant]
     Active Substance: PHYTONADIONE
     Indication: COAGULOPATHY
  33. PHOSPHORIC ACID SODIUM [Concomitant]
     Indication: SUPPLEMENTATION THERAPY
     Dosage: 1 TABLET, 3X A DAY
     Route: 048
     Dates: start: 20151105, end: 20151108

REACTIONS (2)
  - Blood bilirubin increased [Recovered/Resolved]
  - Blood alkaline phosphatase increased [Recovered/Resolved]

NARRATIVE: CASE EVENT DATE: 20151113
